FAERS Safety Report 23785808 (Version 3)
Quarter: 2024Q3

REPORT INFORMATION
  Report Type: Spontaneous
  Country: CA (occurrence: CA)
  Receive Date: 20240425
  Receipt Date: 20240712
  Transmission Date: 20241016
  Serious: Yes (Other)
  Sender: CELLTRION
  Company Number: CA-CELLTRION INC.-2022CA019806

PATIENT

DRUGS (7)
  1. INFLECTRA [Suspect]
     Active Substance: INFLIXIMAB-DYYB
     Indication: Neurosarcoidosis
     Dosage: 5 MG/KG, EVERY 8 WEEKS (WEEK 0,2,6 THEN Q 8 WEEKS)
     Route: 042
     Dates: start: 20231011
  2. INFLECTRA [Suspect]
     Active Substance: INFLIXIMAB-DYYB
     Dosage: 5 MG/KG, EVERY 8 WEEKS (WEEK 0, 2, 6 THEN Q 8 WEEKS)
     Route: 042
     Dates: start: 20231121
  3. INFLECTRA [Suspect]
     Active Substance: INFLIXIMAB-DYYB
     Dosage: 545 MG (5 MG/KG), EVERY 8 WEEKS (REINDUCTION WEEK 0, 2, 6 THEN MAINTENANCE Q 8 WEEKS)
     Route: 042
     Dates: start: 20240117
  4. INFLECTRA [Suspect]
     Active Substance: INFLIXIMAB-DYYB
     Dosage: 600 MG, EVERY 8 WEEKS
     Route: 042
     Dates: start: 20240313
  5. INFLECTRA [Suspect]
     Active Substance: INFLIXIMAB-DYYB
     Dosage: 1 DF, EVERY 8 WEEKS (REINDUCTION WEEK 0, 2, 6 THEN MAINTENANCE Q 8 WEEKS)
     Route: 042
     Dates: start: 20240507
  6. INFLECTRA [Suspect]
     Active Substance: INFLIXIMAB-DYYB
     Dosage: 585 MG, EVERY 8 WEEKS (REINDUCTION WEEK 0, 2, 6 THEN MAINTENANCE Q 8 WEEKS)
     Route: 042
     Dates: start: 20240703
  7. OZEMPIC [Concomitant]
     Active Substance: SEMAGLUTIDE
     Dosage: 1 DF
     Dates: start: 202406

REACTIONS (5)
  - Liver injury [Unknown]
  - Hepatic enzyme increased [Not Recovered/Not Resolved]
  - Weight decreased [Unknown]
  - Drug ineffective for unapproved indication [Unknown]
  - Off label use [Unknown]

NARRATIVE: CASE EVENT DATE: 20230101
